FAERS Safety Report 5802027-1 (Version None)
Quarter: 2008Q3

REPORT INFORMATION
  Report Type: 
  Country: None (occurrence: None)
  Receive Date: 20080702
  Receipt Date: 20080623
  Transmission Date: 20090109
  Serious: Yes (Death, Other)
  Sender: FDA-Public Use
  Company Number: L08-USA-02187-01

PATIENT
  Age: 50 Year
  Sex: Male
  Weight: 89 kg

DRUGS (7)
  1. DILTIAZEM HCL [Suspect]
     Dosage: 240 MG QD
  2. PRECEDEX [Suspect]
     Indication: SEDATION
     Dosage: 50 MCG Q1HR
  3. PRECEDEX [Suspect]
     Indication: SEDATION
     Dosage: 200 MCG Q1HR
  4. METOPROLOL [Suspect]
     Dosage: 50 MG QD
  5. MIDAZOLAM HCL [Suspect]
     Indication: SEDATION
     Dosage: 7 MG ONCE
  6. FENTANYL [Suspect]
     Indication: SEDATION
     Dosage: 125 MCG ONCE
  7. HEPARIN [Concomitant]

REACTIONS (23)
  - AGITATION [None]
  - ANAESTHETIC COMPLICATION [None]
  - ANOXIA [None]
  - ANOXIC ENCEPHALOPATHY [None]
  - BRADYCARDIA [None]
  - BRAIN DEATH [None]
  - BRAIN HERNIATION [None]
  - CARDIAC ARREST [None]
  - CARDIAC PERFORATION [None]
  - CARDIAC TAMPONADE [None]
  - CARDIOGENIC SHOCK [None]
  - CARDIOMEGALY [None]
  - CORONARY ARTERY STENOSIS [None]
  - ELECTROCARDIOGRAM ST SEGMENT ELEVATION [None]
  - ELECTROMECHANICAL DISSOCIATION [None]
  - IDIOSYNCRATIC DRUG REACTION [None]
  - MYOCARDIAL INFARCTION [None]
  - MYOCARDIAL ISCHAEMIA [None]
  - PERICARDIAL EFFUSION [None]
  - PROCEDURAL COMPLICATION [None]
  - VASOCONSTRICTION [None]
  - VENTRICULAR FIBRILLATION [None]
  - VENTRICULAR HYPOKINESIA [None]
